FAERS Safety Report 20950902 (Version 1)
Quarter: 2022Q2

REPORT INFORMATION
  Report Type: Spontaneous
  Country: None (occurrence: US)
  Receive Date: 20220613
  Receipt Date: 20220613
  Transmission Date: 20220721
  Serious: No
  Sender: FDA-Public Use
  Company Number: US-P+L Developments of Newyork Corporation-2129761

PATIENT
  Sex: Male

DRUGS (1)
  1. LORATADINE [Suspect]
     Active Substance: LORATADINE
     Indication: Product used for unknown indication
     Route: 048

REACTIONS (5)
  - Abdominal pain upper [Unknown]
  - Headache [Unknown]
  - Body temperature abnormal [Unknown]
  - Diarrhoea [Unknown]
  - Nausea [Unknown]
